FAERS Safety Report 10572895 (Version 1)
Quarter: 2014Q4

REPORT INFORMATION
  Report Type: Spontaneous
  Country: JP (occurrence: None)
  Receive Date: 20141106
  Receipt Date: 20141106
  Transmission Date: 20150529
  Serious: Yes (Other)
  Sender: FDA-Public Use
  Company Number: VAL_03564_2014

PATIENT
  Age: 25 Year
  Sex: Female

DRUGS (2)
  1. METOPROLOL (METOPROLOL-METOPROLOL TARTRATE) [Suspect]
     Active Substance: METOPROLOL
     Indication: CARDIAC FAILURE
     Dosage: 40 MG DAILY, (60 MG, DAILY)
  2. MEXILETINE [Suspect]
     Active Substance: MEXILETINE
     Indication: CARDIAC FAILURE
     Dosage: DF

REACTIONS (5)
  - Caesarean section [None]
  - Pregnancy [None]
  - Ventricular tachycardia [None]
  - Exposure during pregnancy [None]
  - Premature delivery [None]
